FAERS Safety Report 9826985 (Version 1)
Quarter: 2013Q4

REPORT INFORMATION
  Report Type: Spontaneous
  Country: US (occurrence: None)
  Receive Date: 20131223
  Receipt Date: 20131223
  Transmission Date: 20140711
  Serious: No
  Sender: FDA-Public Use
  Company Number: 220855LEO

PATIENT
  Age: 52 Year
  Sex: Female

DRUGS (4)
  1. PICATO [Suspect]
     Indication: ACTINIC KERATOSIS
     Dosage: 1 IN 1 D, TOPICAL
     Route: 061
     Dates: start: 20130306
  2. MERCAPTOPURINE (MERCAPTOPURINE) (50 MG) [Concomitant]
  3. ACIPHEX (RABEPRAZOLE SODIUM) (20 MG) [Concomitant]
  4. BALSALAZIDE (BALSALAZIDE) (750 MG) [Concomitant]

REACTIONS (3)
  - Application site pain [None]
  - Application site erythema [None]
  - Application site exfoliation [None]
